FAERS Safety Report 5781412-0 (Version None)
Quarter: 2008Q2

REPORT INFORMATION
  Report Type: 
  Country: None (occurrence: None)
  Receive Date: 20080623
  Receipt Date: 20080409
  Transmission Date: 20081010
  Serious: No
  Sender: FDA-Public Use
  Company Number: US-ASTRAZENECA-2008UW07181

PATIENT
  Age: 67 Year
  Sex: Female
  Weight: 53.5 kg

DRUGS (4)
  1. ENTOCORT EC [Suspect]
     Indication: COLITIS COLLAGENOUS
     Dosage: 3MG AT VARYING DOSES
     Route: 048
     Dates: start: 20061101
  2. AMLODIPINE BESYLATE [Concomitant]
  3. MULTI-VITAMIN [Concomitant]
  4. NIACIN [Concomitant]

REACTIONS (1)
  - CONTUSION [None]
